FAERS Safety Report 6144021-X (Version None)
Quarter: 2009Q2

REPORT INFORMATION
  Report Type: 
  Country: None (occurrence: None)
  Receive Date: 20090406
  Receipt Date: 20090402
  Transmission Date: 20091009
  Serious: Yes (Hospitalization)
  Sender: FDA-Public Use
  Company Number: CH-BRISTOL-MYERS SQUIBB COMPANY-14572119

PATIENT
  Age: 43 Year
  Sex: Male

DRUGS (2)
  1. TRITTICO [Suspect]
     Dosage: TRITTICO ND
     Dates: start: 20081115
  2. DALMADORM [Suspect]
     Dates: start: 20081115

REACTIONS (3)
  - ELECTROCARDIOGRAM QT PROLONGED [None]
  - INTENTIONAL OVERDOSE [None]
  - SUICIDE ATTEMPT [None]
